FAERS Safety Report 15204481 (Version 4)
Quarter: 2020Q4

REPORT INFORMATION
  Report Type: Spontaneous
  Country: ES (occurrence: ES)
  Receive Date: 20180726
  Receipt Date: 20201209
  Transmission Date: 20210113
  Serious: Yes (Hospitalization, Congenital Anomaly, Other)
  Sender: FDA-Public Use
  Company Number: ES-PFIZER INC-2018296547

PATIENT
  Age: 33 Week
  Sex: Male
  Weight: 1.44 kg

DRUGS (7)
  1. HERCEPTIN [Suspect]
     Active Substance: TRASTUZUMAB
     Indication: HER2 POSITIVE BREAST CANCER
     Dosage: 8 MG/KG, SINGLE (LOADING DOSE)
     Route: 064
     Dates: start: 20170223, end: 201704
  2. CYCLOPHOSPHAMIDE. [Suspect]
     Active Substance: CYCLOPHOSPHAMIDE
     Indication: HER2 POSITIVE BREAST CANCER
     Dosage: 600 MG/M2, EVERY 3 WEEKS
     Route: 064
     Dates: start: 20161123, end: 20170125
  3. HERCEPTIN [Suspect]
     Active Substance: TRASTUZUMAB
     Dosage: 6 MG/KG, EVERY 3 WEEKS (RECEIVED 3 CYCLES MAINTENANCE DOSE)
     Route: 064
     Dates: end: 201704
  4. PERJETA [Suspect]
     Active Substance: PERTUZUMAB
     Indication: HER2 POSITIVE BREAST CANCER
     Dosage: 840 MG, SINGLE (LOADING DOSE)
     Route: 064
     Dates: start: 201702
  5. PERJETA [Suspect]
     Active Substance: PERTUZUMAB
     Dosage: 420 MG, EVERY 3 WEEKS (RECEIVED 3 CYCLES MAINTAINANCE DOSE)
     Route: 064
     Dates: end: 201704
  6. TAXOL [Suspect]
     Active Substance: PACLITAXEL
     Indication: HER2 POSITIVE BREAST CANCER
     Dosage: 80 MG/M2, WEEKLY
     Route: 064
     Dates: start: 20170125, end: 201703
  7. DOXORUBICIN HCL [Suspect]
     Active Substance: DOXORUBICIN HYDROCHLORIDE
     Indication: HER2 POSITIVE BREAST CANCER
     Dosage: 60 MG/M2, EVERY 3 WEEKS
     Route: 064
     Dates: start: 20161123, end: 20170125

REACTIONS (12)
  - Cardiomyopathy [Unknown]
  - Premature baby [Unknown]
  - Tidal volume decreased [Recovered/Resolved]
  - Proteinuria [Unknown]
  - Pulmonary hypoplasia [Recovering/Resolving]
  - Maternal exposure during pregnancy [Recovered/Resolved]
  - Electrolyte imbalance [Unknown]
  - Hypertension [Unknown]
  - Acute kidney injury [Recovering/Resolving]
  - Accidental exposure to product [Unknown]
  - Oligohydramnios [Recovered/Resolved]
  - Right ventricular hypertrophy [Recovered/Resolved]

NARRATIVE: CASE EVENT DATE: 2017
